FAERS Safety Report 8449881-5 (Version None)
Quarter: 2012Q2

REPORT INFORMATION
  Report Type: 
  Country: None (occurrence: None)
  Receive Date: 20120620
  Receipt Date: 20120608
  Transmission Date: 20120825
  Serious: Yes (Hospitalization)
  Sender: FDA-Public Use
  Company Number: FR-JNJFOC-20120607052

PATIENT
  Sex: Male
  Weight: 0.87 kg

DRUGS (4)
  1. TOPIRAMATE [Suspect]
     Indication: FOETAL EXPOSURE DURING PREGNANCY
     Route: 064
     Dates: end: 20120311
  2. NITRAZEPAM [Suspect]
     Indication: FOETAL EXPOSURE DURING PREGNANCY
     Route: 064
     Dates: end: 20120311
  3. TEGRETOL [Suspect]
     Indication: FOETAL EXPOSURE DURING PREGNANCY
     Route: 064
     Dates: end: 20120311
  4. KEPPRA [Suspect]
     Indication: FOETAL EXPOSURE DURING PREGNANCY
     Route: 064
     Dates: end: 20120311

REACTIONS (4)
  - FOETAL EXPOSURE DURING PREGNANCY [None]
  - PREMATURE BABY [None]
  - DRUG WITHDRAWAL SYNDROME NEONATAL [None]
  - CONVULSION [None]
